FAERS Safety Report 6260613-1 (Version None)
Quarter: 2009Q3

REPORT INFORMATION
  Report Type: 
  Country: None (occurrence: None)
  Receive Date: 20090706
  Receipt Date: 20090618
  Transmission Date: 20100115
  Serious: Yes (Other)
  Sender: FDA-Public Use
  Company Number: 2008S1019153

PATIENT
  Age: 49 Year
  Sex: Male

DRUGS (2)
  1. ALENDRONATE ACID (ALENDRONATE ACID) [Suspect]
     Dosage: ORAL
     Route: 048
  2. INSULIN [Concomitant]

REACTIONS (3)
  - CANDIDIASIS [None]
  - DRUG ADMINISTRATION ERROR [None]
  - TONGUE ULCERATION [None]
